FAERS Safety Report 18194917 (Version 2)
Quarter: 2020Q3

REPORT INFORMATION
  Report Type: Spontaneous
  Country: JP (occurrence: JP)
  Receive Date: 20200825
  Receipt Date: 20200831
  Transmission Date: 20201103
  Serious: Yes (Other)
  Sender: FDA-Public Use
  Company Number: JP-GLAXOSMITHKLINE-JP2020JPN158218

PATIENT
  Sex: Male

DRUGS (1)
  1. ZAGALLO [Suspect]
     Active Substance: DUTASTERIDE
     Indication: ANDROGENETIC ALOPECIA
     Dosage: 0.5 MG, QD
     Route: 048
     Dates: start: 20190323, end: 20200512

REACTIONS (3)
  - Eosinophilic myocarditis [Recovered/Resolved]
  - Eosinophil count increased [Recovered/Resolved]
  - Abdominal pain upper [Recovered/Resolved]

NARRATIVE: CASE EVENT DATE: 20200427
